FAERS Safety Report 5255873-X (Version None)
Quarter: 2007Q1

REPORT INFORMATION
  Report Type: 
  Country: None (occurrence: None)
  Receive Date: 20070301
  Receipt Date: 20070215
  Transmission Date: 20070707
  Serious: Yes (Other)
  Sender: FDA-Public Use
  Company Number: 2007PV030119

PATIENT
  Age: 56 Year
  Sex: Female
  Weight: 150.5942 kg

DRUGS (8)
  1. BYETTA [Suspect]
     Indication: DIABETES MELLITUS NON-INSULIN-DEPENDENT
     Dosage: 5 MCG; BID; SC
     Route: 058
     Dates: start: 20070207, end: 20070215
  2. LAMICTAL [Suspect]
     Indication: CONVULSION
     Dosage: SEE IMAGE
     Route: 048
     Dates: end: 20070215
  3. LAMICTAL [Suspect]
     Indication: CONVULSION
     Dosage: SEE IMAGE
     Route: 048
     Dates: start: 20070215
  4. METFORMIN HCL [Concomitant]
  5. MOBIC [Concomitant]
  6. DIOVAN [Concomitant]
  7. KEFLEX [Concomitant]
  8. FEXODINE [Concomitant]

REACTIONS (2)
  - ABASIA [None]
  - MYOCLONIC EPILEPSY [None]
